FAERS Safety Report 20566215 (Version 1)
Quarter: 2022Q1

REPORT INFORMATION
  Report Type: Report from Study
  Country: TW (occurrence: TW)
  Receive Date: 20220308
  Receipt Date: 20220308
  Transmission Date: 20220424
  Serious: Yes (Death, Other)
  Sender: FDA-Public Use
  Company Number: TW-BRISTOL-MYERS SQUIBB COMPANY-BMS-2022-018872

PATIENT
  Age: 69 Year
  Sex: Male
  Weight: 77 kg

DRUGS (6)
  1. IPILIMUMAB [Suspect]
     Active Substance: IPILIMUMAB
     Indication: Hepatic cancer
     Dosage: 50 MILLIGRAM (50MG/VIAL)
     Route: 041
  2. NIVOLUMAB [Suspect]
     Active Substance: NIVOLUMAB
     Indication: Hepatic cancer
     Route: 041
  3. PALONOSETRON [Concomitant]
     Active Substance: PALONOSETRON
     Indication: Product used for unknown indication
     Dosage: 250 MICROGRAM (IVA, ONCE) (250MCG/ML)
     Route: 065
     Dates: start: 20211231, end: 20220101
  4. DEXAMETHASONE [Concomitant]
     Active Substance: DEXAMETHASONE
     Indication: Product used for unknown indication
     Dosage: 5 MILLIGRAM (IVA, ONCE) (5MG/ML)
     Route: 065
     Dates: start: 20211231, end: 20220101
  5. LASIX [Concomitant]
     Active Substance: FUROSEMIDE
     Indication: Product used for unknown indication
     Dosage: UNK (1 AMP, 20MG/2ML, IVA, ONCE)
     Route: 065
     Dates: start: 20211231, end: 20220101
  6. ALBUMIN HUMAN [Concomitant]
     Active Substance: ALBUMIN HUMAN
     Indication: Product used for unknown indication
     Dosage: UNK (1BOT, 25PERCENT50ML, IVD, BID)
     Route: 065
     Dates: start: 20211231, end: 20220103

REACTIONS (3)
  - Respiratory failure [Fatal]
  - Pneumonia cytomegaloviral [Fatal]
  - Prescribed underdose [Unknown]
